FAERS Safety Report 5772007-3 (Version None)
Quarter: 2008Q2

REPORT INFORMATION
  Report Type: 
  Country: None (occurrence: None)
  Receive Date: 20080612
  Receipt Date: 20080612
  Transmission Date: 20081010
  Serious: Yes (Hospitalization)
  Sender: FDA-Public Use
  Company Number: None

PATIENT
  Age: 37 Year
  Sex: Female
  Weight: 109 kg

DRUGS (2)
  1. NEOSTIGMINE 1:2000 AMERICAN REGENT [Suspect]
     Indication: ANAESTHESIA REVERSAL
     Dosage: 3 MG ONCE IV
     Route: 042
     Dates: start: 20080206, end: 20080206
  2. NEOSTIGMINE 1:2000 AMERICAN REGENT [Suspect]
     Indication: DRUG INEFFECTIVE
     Dosage: 2 MG ONCE IV
     Route: 042
     Dates: start: 20080206, end: 20080206

REACTIONS (2)
  - DRUG EFFECT DECREASED [None]
  - WEANING FAILURE [None]
